FAERS Safety Report 11637111 (Version 1)
Quarter: 2015Q4

REPORT INFORMATION
  Report Type: Spontaneous
  Country: BR (occurrence: BR)
  Receive Date: 20151016
  Receipt Date: 20151016
  Transmission Date: 20160304
  Serious: Yes (Other)
  Sender: FDA-Public Use
  Company Number: BR-JNJFOC-20151007784

PATIENT
  Sex: Female

DRUGS (1)
  1. SIMPONI [Suspect]
     Active Substance: GOLIMUMAB
     Indication: RHEUMATOID ARTHRITIS
     Route: 058
     Dates: start: 20141126, end: 20150820

REACTIONS (7)
  - Blood pressure increased [Unknown]
  - Herpes simplex [Unknown]
  - Nausea [Unknown]
  - Pain [Unknown]
  - Decreased appetite [Unknown]
  - Weight decreased [Unknown]
  - Drug ineffective [Unknown]
